FAERS Safety Report 7561228-5 (Version None)
Quarter: 2011Q2

REPORT INFORMATION
  Report Type: 
  Country: None (occurrence: None)
  Receive Date: 20110621
  Receipt Date: 20101025
  Transmission Date: 20111010
  Serious: No
  Sender: FDA-Public Use
  Company Number: US-ASTRAZENECA-2010SE50610

PATIENT
  Sex: Female
  Weight: 74.8 kg

DRUGS (10)
  1. METOPROLOL TARTRATE [Concomitant]
  2. FUROSEMIDE [Concomitant]
  3. ALBUTEROL SULFATE AUTOHALER [Concomitant]
  4. PULMICORT [Suspect]
     Dosage: 25 MG/2 ML TWO TIMES A DAY
     Route: 055
  5. PROPAFENONE HCL [Concomitant]
  6. COUMADIN [Concomitant]
  7. LEVOTHYROXINE SODIUM [Concomitant]
  8. CARDIZEM CD [Concomitant]
  9. BROVANA [Concomitant]
  10. PULMICORT [Suspect]
     Dosage: 25 MG/2 ML ONCE A DAY
     Route: 055

REACTIONS (2)
  - OROPHARYNGEAL PAIN [None]
  - INCORRECT DOSE ADMINISTERED [None]
